FAERS Safety Report 4648498-8 (Version None)
Quarter: 2005Q2

REPORT INFORMATION
  Report Type: 
  Country: None (occurrence: None)
  Receive Date: 20050429
  Receipt Date: 20050422
  Transmission Date: 20051028
  Serious: Yes (Other)
  Sender: FDA-Public Use
  Company Number: PHBS2005FI05864

PATIENT
  Age: 69 Year
  Sex: Female

DRUGS (7)
  1. AREDIA [Suspect]
     Indication: MULTIPLE MYELOMA
     Dosage: 90 MG
     Dates: start: 20020201, end: 20020502
  2. ZOMETA [Suspect]
     Indication: MULTIPLE MYELOMA
     Dosage: 4 MG
     Dates: start: 20020801, end: 20050418
  3. THALIDOMIDE [Suspect]
     Dosage: UNK, UNK
     Route: 065
     Dates: start: 20021029, end: 20040413
  4. THALIDOMIDE [Suspect]
     Dosage: 600 MG/D
     Route: 065
     Dates: end: 20040413
  5. CYCLOPHOSPHAMIDE [Concomitant]
  6. PREDNISONE [Concomitant]
  7. VINCRISTINE + ADRIAMYCIN + DEXAMETHASONE [Concomitant]

REACTIONS (6)
  - ASEPTIC NECROSIS BONE [None]
  - DENTAL OPERATION [None]
  - DRUG INTERACTION [None]
  - GINGIVAL ULCERATION [None]
  - JAW OPERATION [None]
  - PULMONARY EMBOLISM [None]
